FAERS Safety Report 4479691-5 (Version None)
Quarter: 2004Q4

REPORT INFORMATION
  Report Type: 
  Country: None (occurrence: None)
  Receive Date: 20041020
  Receipt Date: 20041013
  Transmission Date: 20050328
  Serious: Yes (Life-Threatening)
  Sender: FDA-Public Use
  Company Number: 2004JP001806

PATIENT
  Age: 81 Year
  Sex: Female

DRUGS (12)
  1. SAWACILLIN [Suspect]
     Indication: DUODENAL ULCER
     Dosage: 500MG TWICE PER DAY
     Route: 048
     Dates: start: 20040813, end: 20040815
  2. OMEPRAZOLE [Suspect]
     Indication: DUODENAL ULCER
     Dosage: 20MG TWICE PER DAY
     Route: 048
     Dates: start: 20040813, end: 20040815
  3. KLARICID [Suspect]
     Indication: DUODENAL ULCER
     Dosage: 400MG TWICE PER DAY
     Route: 048
     Dates: start: 20040813, end: 20040815
  4. PREDONINE [Concomitant]
  5. DIOVAN [Concomitant]
  6. DISOPYRAMIDE PHOSPHATE [Concomitant]
  7. ONON [Concomitant]
  8. SLOW-K [Concomitant]
  9. SPIROPENT [Concomitant]
  10. NORVASC [Concomitant]
  11. UNIFYL [Concomitant]
  12. ALLEGRA [Concomitant]

REACTIONS (6)
  - DEPRESSED LEVEL OF CONSCIOUSNESS [None]
  - DIZZINESS [None]
  - FEELING COLD [None]
  - GLOSSOPTOSIS [None]
  - HYPOGLYCAEMIC COMA [None]
  - NAUSEA [None]
